FAERS Safety Report 4497640-0 (Version None)
Quarter: 2004Q4

REPORT INFORMATION
  Report Type: 
  Country: None (occurrence: None)
  Receive Date: 20041103
  Receipt Date: 20041021
  Transmission Date: 20050328
  Serious: Yes (Other)
  Sender: FDA-Public Use
  Company Number: US-JNJFOC-20041006753

PATIENT
  Sex: Male

DRUGS (3)
  1. NATRECOR [Suspect]
     Indication: DRUG USE FOR UNKNOWN INDICATION
     Route: 042
  2. APROTININ [Concomitant]
  3. AMICAR [Concomitant]

REACTIONS (1)
  - VASCULAR GRAFT OCCLUSION [None]
